FAERS Safety Report 14453582 (Version 1)
Quarter: 2018Q1

REPORT INFORMATION
  Report Type: Spontaneous
  Country: US (occurrence: US)
  Receive Date: 20180129
  Receipt Date: 20180129
  Transmission Date: 20180509
  Serious: Yes (Death)
  Sender: FDA-Public Use
  Company Number: US-ASTELLAS-2018US005499

PATIENT
  Sex: Female

DRUGS (1)
  1. TARCEVA [Suspect]
     Active Substance: ERLOTINIB HYDROCHLORIDE
     Indication: RESPIRATORY TRACT NEOPLASM
     Dosage: 75 MG, ONCE DAILY (3 TABLETS: (STRENGTH: 25 MG))
     Route: 048
     Dates: start: 20170313

REACTIONS (1)
  - Death [Fatal]
